FAERS Safety Report 7102757-8 (Version None)
Quarter: 2010Q4

REPORT INFORMATION
  Report Type: 
  Country: None (occurrence: None)
  Receive Date: 20101115
  Receipt Date: 20101102
  Transmission Date: 20110411
  Serious: Yes (Death, Other)
  Sender: FDA-Public Use
  Company Number: US-JNJFOC-20100704535

PATIENT
  Sex: Male
  Weight: 71.67 kg

DRUGS (4)
  1. REMICADE [Suspect]
     Indication: COLITIS ULCERATIVE
     Route: 042
  2. REMICADE [Suspect]
     Route: 042
  3. REMICADE [Suspect]
     Route: 042
  4. REMICADE [Suspect]
     Route: 042

REACTIONS (5)
  - ERYTHEMA [None]
  - HEAD AND NECK CANCER [None]
  - LIP AND/OR ORAL CAVITY CANCER [None]
  - OEDEMA PERIPHERAL [None]
  - OESOPHAGEAL CARCINOMA [None]
